FAERS Safety Report 6139901-5 (Version None)
Quarter: 2009Q1

REPORT INFORMATION
  Report Type: 
  Country: None (occurrence: None)
  Receive Date: 20090324
  Receipt Date: 20090318
  Transmission Date: 20090719
  Serious: Yes (Hospitalization)
  Sender: FDA-Public Use
  Company Number: 2009AP000182

PATIENT
  Age: 56 Year
  Sex: Female

DRUGS (3)
  1. LACTULOSE [Suspect]
     Indication: CONSTIPATION
     Dosage: 30 ML;BID; PO
     Route: 048
     Dates: start: 20090112, end: 20090114
  2. KETOROLAC TROMETHAMINE [Concomitant]
  3. HYOSCINE BUTYLBROMIDE (HYOSCINE SUTYLBROMIDE) [Concomitant]

REACTIONS (5)
  - CONDITION AGGRAVATED [None]
  - HYPERSENSITIVITY [None]
  - REACTION TO DRUG EXCIPIENTS [None]
  - SWELLING [None]
  - VIRAL INFECTION [None]
